FAERS Safety Report 7279043-9 (Version None)
Quarter: 2011Q1

REPORT INFORMATION
  Report Type: 
  Country: None (occurrence: None)
  Receive Date: 20110207
  Receipt Date: 20110131
  Transmission Date: 20110831
  Serious: Yes (Death, Other)
  Sender: FDA-Public Use
  Company Number: PHHY2009DE44954

PATIENT
  Sex: Female
  Weight: 55 kg

DRUGS (1)
  1. GLEEVEC [Suspect]
     Indication: CHRONIC MYELOID LEUKAEMIA
     Dosage: 400 MG, DAILY
     Route: 048
     Dates: start: 20070101, end: 20091001

REACTIONS (3)
  - LEUKAEMIA RECURRENT [None]
  - METASTASES TO MENINGES [None]
  - NEUTROPENIA [None]
